FAERS Safety Report 8908329 (Version 2)
Quarter: 2013Q1

REPORT INFORMATION
  Report Type: Spontaneous
  Country: US (occurrence: US)
  Receive Date: 20121114
  Receipt Date: 20130122
  Transmission Date: 20140127
  Serious: Yes (Other)
  Sender: FDA-Public Use
  Company Number: CHPA2012US023145

PATIENT
  Age: 82 Year
  Sex: Female

DRUGS (2)
  1. EXCEDRIN EXTRA STRENGTH [Suspect]
     Indication: SINUS DISORDER
     Dosage: 2 DF, PRN
     Route: 048
     Dates: start: 2011, end: 201203
  2. EXCEDRIN PM [Suspect]
     Indication: HEADACHE
     Dosage: 2 DF, ONCE/SINGLE
     Route: 048
     Dates: start: 2011, end: 2011

REACTIONS (9)
  - Back pain [Not Recovered/Not Resolved]
  - Spinal pain [Not Recovered/Not Resolved]
  - Back disorder [Unknown]
  - Nerve compression [Recovered/Resolved]
  - Malaise [Not Recovered/Not Resolved]
  - Head discomfort [Recovered/Resolved]
  - Diarrhoea [Recovered/Resolved]
  - Oral discomfort [Not Recovered/Not Resolved]
  - Vomiting [Recovered/Resolved]
